FAERS Safety Report 15574283 (Version 1)
Quarter: 2018Q4

REPORT INFORMATION
  Report Type: Spontaneous
  Country: JP (occurrence: JP)
  Receive Date: 20181101
  Receipt Date: 20181101
  Transmission Date: 20190205
  Serious: Yes (Other)
  Sender: FDA-Public Use
  Company Number: JP-BAYER-2018-201536

PATIENT
  Age: 64 Year
  Sex: Female

DRUGS (5)
  1. ADEMPAS [Suspect]
     Active Substance: RIOCIGUAT
     Indication: PULMONARY ARTERIAL HYPERTENSION
     Dosage: DAILY DOSE 2 MG
     Route: 048
     Dates: start: 20181015
  2. ANGIOTENSIN II [Concomitant]
     Active Substance: ANGIOTENSIN II
  3. ADEMPAS [Suspect]
     Active Substance: RIOCIGUAT
     Indication: PULMONARY ARTERIAL HYPERTENSION
     Dosage: DAILY DOSE 1 MG
     Route: 048
     Dates: start: 20181001, end: 20181014
  4. AMBRISENTAN [Suspect]
     Active Substance: AMBRISENTAN
  5. SELEXIPAG [Suspect]
     Active Substance: SELEXIPAG

REACTIONS (2)
  - Pulmonary vein occlusion [None]
  - Pulmonary congestion [Not Recovered/Not Resolved]

NARRATIVE: CASE EVENT DATE: 20181029
